FAERS Safety Report 15615013 (Version 1)
Quarter: 2018Q4

REPORT INFORMATION
  Report Type: Spontaneous
  Country: US (occurrence: US)
  Receive Date: 20181114
  Receipt Date: 20181114
  Transmission Date: 20190205
  Serious: Yes (Hospitalization, Other)
  Sender: FDA-Public Use
  Company Number: US-009507513-1811USA004560

PATIENT
  Age: 52 Year
  Sex: Female

DRUGS (4)
  1. CARBOPLATIN. [Concomitant]
     Active Substance: CARBOPLATIN
  2. KEYTRUDA [Suspect]
     Active Substance: PEMBROLIZUMAB
     Indication: NON-SMALL CELL LUNG CANCER
     Dosage: UNKNOWN
     Route: 042
  3. NEULASTA [Concomitant]
     Active Substance: PEGFILGRASTIM
  4. PEMETREXED DISODIUM [Concomitant]
     Active Substance: PEMETREXED DISODIUM

REACTIONS (2)
  - Hepatitis [Unknown]
  - Transaminases increased [Unknown]
